FAERS Safety Report 23504879 (Version 1)
Quarter: 2024Q1

REPORT INFORMATION
  Report Type: Spontaneous
  Country: BE (occurrence: BE)
  Receive Date: 20240209
  Receipt Date: 20240209
  Transmission Date: 20240409
  Serious: No
  Sender: FDA-Public Use
  Company Number: None

PATIENT
  Age: 70 Year
  Sex: Male

DRUGS (4)
  1. GABAPENTIN [Suspect]
     Active Substance: GABAPENTIN
     Indication: Action tremor
     Dosage: 400 MILLIGRAM, BID (EVERY 12 HOUR)
     Route: 065
  2. CLONAZEPAM [Suspect]
     Active Substance: CLONAZEPAM
     Indication: Action tremor
     Dosage: 0.25 MILLIGRAM, TID
     Route: 065
  3. PRIMIDONE [Suspect]
     Active Substance: PRIMIDONE
     Indication: Action tremor
     Dosage: 125 MILLIGRAM, QD
     Route: 065
  4. TOPIRAMATE [Concomitant]
     Active Substance: TOPIRAMATE
     Indication: Action tremor
     Dosage: 50 MILLIGRAM, BID
     Route: 065

REACTIONS (1)
  - Fatigue [Unknown]
